FAERS Safety Report 8614572-4 (Version None)
Quarter: 2012Q3

REPORT INFORMATION
  Report Type: 
  Country: None (occurrence: None)
  Receive Date: 20120823
  Receipt Date: 20120809
  Transmission Date: 20120928
  Serious: Yes (Hospitalization)
  Sender: FDA-Public Use
  Company Number: JP-VERTEX PHARMACEUTICAL INC.-2012-019671

PATIENT
  Sex: Female

DRUGS (14)
  1. REBETOL [Concomitant]
     Dosage: 200 MG, QD
     Route: 048
     Dates: start: 20120713, end: 20120806
  2. FEBURIC [Concomitant]
     Dosage: 20 MG, QD
     Route: 048
     Dates: start: 20120727
  3. BIO-THREE [Concomitant]
     Dosage: 3 UNK, UNK
     Route: 048
     Dates: start: 20120727
  4. VX-950 [Suspect]
     Dosage: 2250 MG, QD
     Route: 048
     Dates: start: 20120628, end: 20120806
  5. PEGINTRON                          /01543001/ [Concomitant]
     Indication: HEPATITIS C
     Dosage: 1.5 A?G/KG, UNK
     Route: 058
     Dates: start: 20120621, end: 20120806
  6. LOXONIN [Concomitant]
     Dosage: 60 MG, PRN
     Route: 048
     Dates: start: 20120621
  7. VX-950 [Suspect]
     Dosage: UNK
  8. FLOMOX [Concomitant]
     Dosage: 300 MG, UNK
     Route: 048
     Dates: start: 20120716, end: 20120619
  9. VX-950 [Suspect]
     Indication: HEPATITIS C
     Dosage: 1500 MG, QD
     Route: 048
     Dates: start: 20120621, end: 20120627
  10. REBETOL [Concomitant]
     Indication: HEPATITIS C
     Dosage: 600 MG, QD
     Route: 048
     Dates: start: 20120621, end: 20120704
  11. FEBURIC [Concomitant]
     Dosage: 10 MG, QD
     Route: 048
     Dates: start: 20120621, end: 20120726
  12. LOCOID [Concomitant]
     Dosage: UNK
     Route: 061
     Dates: start: 20120628, end: 20120703
  13. REBETOL [Concomitant]
     Dosage: 400 MG, QD
     Route: 048
     Dates: start: 20120705, end: 20120712
  14. MUCOSTA [Concomitant]
     Dosage: 100 MG, PRN
     Route: 048
     Dates: start: 20120721

REACTIONS (1)
  - DRUG ERUPTION [None]
